FAERS Safety Report 18058593 (Version 1)
Quarter: 2020Q3

REPORT INFORMATION
  Report Type: Spontaneous
  Country: US (occurrence: US)
  Receive Date: 20200722
  Receipt Date: 20200722
  Transmission Date: 20201103
  Serious: No
  Sender: FDA-Public Use
  Company Number: None

PATIENT
  Age: 68 Year
  Sex: Female
  Weight: 85.5 kg

DRUGS (2)
  1. 60MG, PLANT?BASED CANNABINOIDS PER 1ML HEMP EXTRACT MINT CHOCOLATE FLA [Suspect]
     Active Substance: CANNABIDIOL\HERBALS
     Indication: PAIN
     Dosage: ?          QUANTITY:1 DROP(S);?
     Route: 048
     Dates: start: 20191201, end: 20200721
  2. 60MG, PLANT?BASED CANNABINOIDS PER 1ML HEMP EXTRACT MINT CHOCOLATE FLA [Suspect]
     Active Substance: CANNABIDIOL\HERBALS
     Indication: INSOMNIA
     Dosage: ?          QUANTITY:1 DROP(S);?
     Route: 048
     Dates: start: 20191201, end: 20200721

REACTIONS (5)
  - Dysphonia [None]
  - Suspected product quality issue [None]
  - Dysphagia [None]
  - Oropharyngeal pain [None]
  - Throat irritation [None]

NARRATIVE: CASE EVENT DATE: 20200721
